FAERS Safety Report 14590684 (Version 1)
Quarter: 2018Q1

REPORT INFORMATION
  Report Type: Spontaneous
  Country: US (occurrence: US)
  Receive Date: 20180301
  Receipt Date: 20180301
  Transmission Date: 20180509
  Serious: Yes (Disabling)
  Sender: FDA-Public Use
  Company Number: None

PATIENT
  Age: 52 Year
  Sex: Female
  Weight: 63 kg

DRUGS (2)
  1. BC (ASPIRIN\CAFFEINE) [Suspect]
     Active Substance: ASPIRIN\CAFFEINE
     Indication: BACK PAIN
     Route: 048
     Dates: start: 20150306, end: 20180301
  2. ONE-A-DAY NOS [Concomitant]
     Active Substance: MINERALS\VITAMINS

REACTIONS (7)
  - Feeling abnormal [None]
  - Alcohol use [None]
  - Restlessness [None]
  - Crime [None]
  - Loss of consciousness [None]
  - Memory impairment [None]
  - Antisocial behaviour [None]

NARRATIVE: CASE EVENT DATE: 20180228
